FAERS Safety Report 7606112-3 (Version None)
Quarter: 2011Q3

REPORT INFORMATION
  Report Type: 
  Country: None (occurrence: None)
  Receive Date: 20110713
  Receipt Date: 20110713
  Transmission Date: 20111222
  Serious: Yes (Other)
  Sender: FDA-Public Use
  Company Number: IE-PFIZER INC-2011046646

PATIENT
  Age: 39 Year
  Weight: 72 kg

DRUGS (7)
  1. METHADONE [Concomitant]
     Indication: DRUG DEPENDENCE
     Dosage: 60 MG, 1X/DAY
     Route: 048
  2. LYRICA [Suspect]
     Indication: ANXIETY
     Dosage: 75 MG, 2X/DAY, TOOK FOR ONE WEEK
     Route: 048
     Dates: start: 20110201
  3. THIAMINE [Concomitant]
     Indication: VITAMIN SUPPLEMENTATION
     Dosage: 1 DF, 1X/DAY
     Route: 048
  4. MIRTAZAPINE [Concomitant]
     Indication: DEPRESSION
     Dosage: 40 MG, 1X/DAY
     Route: 048
  5. LYRICA [Suspect]
     Dosage: 100 MG, 2X/DAY
     Route: 048
     Dates: start: 20110209
  6. CANNABIS [Concomitant]
  7. LANSOPRAZOLE [Concomitant]
     Indication: DYSPEPSIA
     Dosage: 30 MG, 1X/DAY
     Route: 048

REACTIONS (7)
  - FEELING DRUNK [None]
  - DISINHIBITION [None]
  - REPETITIVE SPEECH [None]
  - CONFUSIONAL STATE [None]
  - EUPHORIC MOOD [None]
  - AGGRESSION [None]
  - DRUG DEPENDENCE [None]
